FAERS Safety Report 23896207 (Version 1)
Quarter: 2024Q2

REPORT INFORMATION
  Report Type: Spontaneous
  Country: US (occurrence: US)
  Receive Date: 20240524
  Receipt Date: 20240524
  Transmission Date: 20240715
  Serious: Yes (Hospitalization, Other)
  Sender: FDA-Public Use
  Company Number: US-EDENBRIDGE PHARMACEUTICALS, LLC-US-2024EDE000037

PATIENT

DRUGS (1)
  1. LOPERAMIDE [Suspect]
     Active Substance: LOPERAMIDE
     Indication: Product used for unknown indication
     Dosage: 96 MG
     Route: 065

REACTIONS (7)
  - Acute kidney injury [Unknown]
  - Cardiac failure high output [Unknown]
  - Pancreatitis [Unknown]
  - Distributive shock [Unknown]
  - Leukocytosis [Unknown]
  - Hypertransaminasaemia [Unknown]
  - Overdose [Unknown]

NARRATIVE: CASE EVENT DATE: 20230101
